FAERS Safety Report 23406210 (Version 1)
Quarter: 2024Q1

REPORT INFORMATION
  Report Type: Spontaneous
  Country: US (occurrence: US)
  Receive Date: 20240116
  Receipt Date: 20240116
  Transmission Date: 20240409
  Serious: No
  Sender: FDA-Public Use
  Company Number: US-Eisai-EC-2023-155135

PATIENT
  Age: 9 Year
  Sex: Female
  Weight: 34.47 kg

DRUGS (11)
  1. BANZEL [Suspect]
     Active Substance: RUFINAMIDE
     Indication: Epilepsy
     Route: 048
     Dates: start: 20231018, end: 20231117
  2. BANZEL [Suspect]
     Active Substance: RUFINAMIDE
     Indication: Partial seizures
     Route: 048
     Dates: start: 20231118, end: 20231205
  3. BANZEL [Suspect]
     Active Substance: RUFINAMIDE
     Indication: Epilepsy
     Route: 048
     Dates: start: 20231206
  4. ADDERALL [Concomitant]
     Active Substance: AMPHETAMINE ASPARTATE\AMPHETAMINE SULFATE\DEXTROAMPHETAMINE SACCHARATE\DEXTROAMPHETAMINE SULFATE
  5. CHOLECALCIFEROL [Concomitant]
     Active Substance: CHOLECALCIFEROL
  6. CLONAZEPAM [Concomitant]
     Active Substance: CLONAZEPAM
  7. EPIDIOLEX [Concomitant]
     Active Substance: CANNABIDIOL
  8. FLUOXETINE [Concomitant]
     Active Substance: FLUOXETINE HYDROCHLORIDE
  9. GABAPENTIN [Concomitant]
     Active Substance: GABAPENTIN
  10. MELATONIN [Concomitant]
     Active Substance: MELATONIN
  11. NAYZILAM [Concomitant]
     Active Substance: MIDAZOLAM

REACTIONS (11)
  - Urinary incontinence [Unknown]
  - Micturition urgency [Unknown]
  - Irritability [Unknown]
  - Aggression [Unknown]
  - Diarrhoea [Unknown]
  - Impulsive behaviour [Unknown]
  - Somnolence [Unknown]
  - Cough [Recovered/Resolved]
  - Fatigue [Recovered/Resolved]
  - Oropharyngeal pain [Recovered/Resolved]
  - Lymphadenopathy [Recovered/Resolved]

NARRATIVE: CASE EVENT DATE: 20230101
